FAERS Safety Report 12591268 (Version 2)
Quarter: 2016Q3

REPORT INFORMATION
  Report Type: Spontaneous
  Country: US (occurrence: US)
  Receive Date: 20160726
  Receipt Date: 20160726
  Transmission Date: 20161109
  Serious: No
  Sender: FDA-Public Use
  Company Number: US-UNITED THERAPEUTICS-UNT-2015-016163

PATIENT
  Age: 44 Year
  Sex: Female
  Weight: 82.54 kg

DRUGS (5)
  1. TYVASO [Suspect]
     Active Substance: TREPROSTINIL
     Indication: PULMONARY ARTERIAL HYPERTENSION
     Dosage: 18-72 ?G, QID
     Dates: start: 20150701
  2. REVATIO [Concomitant]
     Active Substance: SILDENAFIL CITRATE
     Indication: PRODUCT USED FOR UNKNOWN INDICATION
  3. REMODULIN [Suspect]
     Active Substance: TREPROSTINIL
     Indication: PULMONARY ARTERIAL HYPERTENSION
     Dosage: 0.015 ?G/KG/MIN, CONTINUING
     Route: 058
     Dates: start: 20151217
  4. TRAMADOL. [Suspect]
     Active Substance: TRAMADOL
     Indication: PRODUCT USED FOR UNKNOWN INDICATION
     Route: 065
  5. TYVASO [Suspect]
     Active Substance: TREPROSTINIL
     Dosage: 18-54 ?G, QID
     Dates: start: 20150218

REACTIONS (7)
  - Pain in jaw [Unknown]
  - Pain in extremity [Recovered/Resolved]
  - Rash [Unknown]
  - Headache [Unknown]
  - Pain [Recovered/Resolved]
  - Contusion [Unknown]
  - Nausea [Unknown]

NARRATIVE: CASE EVENT DATE: 201512
